FAERS Safety Report 7256737-2 (Version None)
Quarter: 2011Q1

REPORT INFORMATION
  Report Type: 
  Country: None (occurrence: None)
  Receive Date: 20110129
  Receipt Date: 20100722
  Transmission Date: 20110831
  Serious: No
  Sender: FDA-Public Use
  Company Number: US-ABBOTT-10P-163-0659389-00

PATIENT
  Age: 57 Year
  Sex: Male

DRUGS (6)
  1. HYDROCODONE [Concomitant]
     Indication: PAIN
  2. VITAMIN B-12 [Concomitant]
     Indication: PRODUCT USED FOR UNKNOWN INDICATION
     Dosage: 1 X MONTH
  3. FENTANYL [Concomitant]
     Indication: PAIN
     Dosage: PATCH
  4. VENLAFAXINE [Concomitant]
     Indication: DEPRESSION
  5. HUMIRA [Suspect]
     Indication: CROHN'S DISEASE
     Dates: start: 20100601
  6. BUTALBITAL [Concomitant]
     Indication: MIGRAINE
     Dosage: 50 CAFF

REACTIONS (1)
  - INCORRECT DOSE ADMINISTERED [None]
